FAERS Safety Report 15994581 (Version 4)
Quarter: 2019Q4

REPORT INFORMATION
  Report Type: Report from Study
  Country: CA (occurrence: CA)
  Receive Date: 20190222
  Receipt Date: 20191004
  Transmission Date: 20200122
  Serious: No
  Sender: FDA-Public Use
  Company Number: CA-ROCHE-2186553

PATIENT
  Age: 43 Year
  Sex: Female

DRUGS (5)
  1. ACETAMINOPHEN. [Concomitant]
     Active Substance: ACETAMINOPHEN
     Indication: PREMEDICATION
     Route: 048
  2. BENADRYL [Concomitant]
     Active Substance: DIPHENHYDRAMINE HYDROCHLORIDE
     Indication: PREMEDICATION
     Route: 048
  3. OCREVUS [Suspect]
     Active Substance: OCRELIZUMAB
     Indication: RELAPSING-REMITTING MULTIPLE SCLEROSIS
     Dosage: 1 10-ML VIAL TO BE INJECTED IN 250 ML OF NS?300 MG DAY 0 AND 14 THEN 600 MG EVERY 6 MONTHS
     Route: 042
     Dates: start: 20180913
  4. OCREVUS [Suspect]
     Active Substance: OCRELIZUMAB
     Dosage: 2 10-ML VIALS TO BE INJECTED IN 500 ML OF NS)
     Route: 042
  5. METHYLPREDNISOLONE. [Concomitant]
     Active Substance: METHYLPREDNISOLONE
     Indication: PREMEDICATION
     Dosage: 1.6 ML OF 125 ML IV DS NS 100 ML X 15 MINS
     Route: 042

REACTIONS (13)
  - Throat irritation [Recovered/Resolved]
  - Ear pain [Recovered/Resolved]
  - Nasal congestion [Not Recovered/Not Resolved]
  - Ear pruritus [Recovered/Resolved]
  - Sinusitis [Recovering/Resolving]
  - Eye pruritus [Recovered/Resolved]
  - Oropharyngeal pain [Unknown]
  - Headache [Recovered/Resolved]
  - Hypotension [Unknown]
  - Feeling cold [Unknown]
  - Infusion related reaction [Recovered/Resolved]
  - Eye irritation [Unknown]
  - Nasopharyngitis [Recovering/Resolving]

NARRATIVE: CASE EVENT DATE: 20180913
